FAERS Safety Report 23056072 (Version 1)
Quarter: 2023Q4

REPORT INFORMATION
  Report Type: Report from Study
  Country: AT (occurrence: AT)
  Receive Date: 20231011
  Receipt Date: 20231011
  Transmission Date: 20240110
  Serious: Yes (Hospitalization)
  Sender: FDA-Public Use
  Company Number: AT-TEVA-2023-AT-2929969

PATIENT
  Age: 60 Year
  Sex: Male
  Weight: 65 kg

DRUGS (17)
  1. LENALIDOMIDE [Suspect]
     Active Substance: LENALIDOMIDE
     Indication: Follicular lymphoma
     Dosage: 10 MILLIGRAM, QD (DAY 1 TO 21)
     Route: 048
     Dates: start: 20221212, end: 20230705
  2. LENALIDOMIDE [Suspect]
     Active Substance: LENALIDOMIDE
     Dosage: 10 MILLIGRAM, QD (DAY 1 TO 21)
     Route: 048
     Dates: start: 20230830
  3. EPCORITAMAB [Suspect]
     Active Substance: EPCORITAMAB
     Indication: Follicular lymphoma
     Dosage: 48MG(C1(STEP-UP),C2,3,WEEKLY,C4-12,EVERY 4 WEEKS)
     Route: 058
     Dates: start: 20221212, end: 20230626
  4. EPCORITAMAB [Suspect]
     Active Substance: EPCORITAMAB
     Dosage: 0.16 MILLIGRAM (PRIMING DOSE, D1, TOTAL)
     Route: 058
     Dates: start: 20230830
  5. RITUXIMAB [Suspect]
     Active Substance: RITUXIMAB
     Indication: Follicular lymphoma
     Dosage: 375 MILLIGRAM/SQ. METER, MONTHLY (EVERY 4 WEEKS)
     Route: 065
     Dates: start: 20221212, end: 20230419
  6. PANTOPRAZOLE SODIUM [Concomitant]
     Active Substance: PANTOPRAZOLE SODIUM
     Indication: Therapeutic procedure
     Dosage: 40 MILLIGRAM (AS NECESSARY)
     Route: 065
     Dates: start: 20230410
  7. TROMALYT ASS [Concomitant]
     Indication: Cardiovascular event prophylaxis
     Dosage: 100 MILLIGRAM, QD
     Route: 065
     Dates: start: 20221213
  8. Paspertin [Concomitant]
     Indication: Nausea
     Dosage: 30 MILLIGRAM, QD
     Route: 065
     Dates: start: 20221213
  9. GLANDOMED [Concomitant]
     Indication: Infection prophylaxis
     Dosage: QD (4/DAYS)
     Route: 065
     Dates: start: 20221213
  10. BUTYLSCOPOLAMINE BROMIDE [Concomitant]
     Active Substance: BUTYLSCOPOLAMINE BROMIDE
     Indication: Pain prophylaxis
     Dosage: 10 MILLIGRAM (AS NECESSARY)
     Route: 065
     Dates: start: 20221213
  11. LOPERAMIDE HYDROCHLORIDE [Concomitant]
     Active Substance: LOPERAMIDE HYDROCHLORIDE
     Indication: Diarrhoea
     Dosage: 2 MILLIGRAM, QD  (16 MILLIGRAM DAILY)
     Route: 065
     Dates: start: 20221213
  12. POLYETHYLENE GLYCOL 3350\POTASSIUM CHLORIDE\SODIUM BICARBONATE\SODIUM [Concomitant]
     Active Substance: POLYETHYLENE GLYCOL 3350\POTASSIUM CHLORIDE\SODIUM BICARBONATE\SODIUM CHLORIDE
     Indication: Constipation
     Dosage: 3 DOSAGE FORM, QD
     Route: 065
     Dates: start: 20221213
  13. ACETAMINOPHEN [Concomitant]
     Active Substance: ACETAMINOPHEN
     Indication: Pain
     Dosage: 500 MILLIGRAM (AS NECESSARY)
     Route: 065
     Dates: start: 20221213
  14. T100 [Concomitant]
     Indication: Decreased appetite
     Dosage: 1 DOSAGE FORM, TID (1 DROPS, 3/DAYS)
     Route: 065
  15. EXFORGE HCT [Concomitant]
     Active Substance: AMLODIPINE BESYLATE\HYDROCHLOROTHIAZIDE\VALSARTAN
     Indication: Hypertension
     Dosage: 1 DOSAGE FORM, QD (STRENGTH: 10MG/160MG/12.5MG)
     Route: 065
     Dates: start: 20221213
  16. DEXIBUPROFEN [Concomitant]
     Active Substance: DEXIBUPROFEN
     Indication: Pain prophylaxis
     Dosage: 400 MILLIGRAM (AS NECESSARY)
     Route: 065
     Dates: start: 20230111
  17. ZOFRAN [Concomitant]
     Active Substance: ONDANSETRON HYDROCHLORIDE
     Indication: Nausea
     Dosage: 8 MILLIGRAM, QD (16 MILLIGRAM DAILY)
     Route: 065
     Dates: start: 20221213

REACTIONS (1)
  - COVID-19 [Recovered/Resolved]

NARRATIVE: CASE EVENT DATE: 20230725
